FAERS Safety Report 25767533 (Version 1)
Quarter: 2025Q3

REPORT INFORMATION
  Report Type: Spontaneous
  Country: US (occurrence: None)
  Receive Date: 20250904
  Receipt Date: 20250904
  Transmission Date: 20251021
  Serious: Yes (Other)
  Sender: FDA-CTU
  Company Number: None

PATIENT
  Age: 44 Year
  Sex: Female
  Weight: 63 kg

DRUGS (6)
  1. TIRZEPATIDE [Suspect]
     Active Substance: TIRZEPATIDE
     Indication: Weight decreased
     Route: 050
     Dates: start: 20240517, end: 20240609
  2. SEMAGLUTIDE [Suspect]
     Active Substance: SEMAGLUTIDE
  3. MELATONIN [Concomitant]
     Active Substance: MELATONIN
  4. ZYRTEC [Concomitant]
     Active Substance: CETIRIZINE HYDROCHLORIDE
  5. BIOTIN [Concomitant]
     Active Substance: BIOTIN
  6. daily multivitamins [Concomitant]

REACTIONS (4)
  - Product dispensing error [None]
  - Wrong product administered [None]
  - Illness [None]
  - Food poisoning [None]

NARRATIVE: CASE EVENT DATE: 20240517
